FAERS Safety Report 5691061-0 (Version None)
Quarter: 2008Q2

REPORT INFORMATION
  Report Type: 
  Country: None (occurrence: None)
  Receive Date: 20080401
  Receipt Date: 20080326
  Transmission Date: 20081010
  Serious: Yes (Other)
  Sender: FDA-Public Use
  Company Number: DE-PFIZER INC-2008022743

PATIENT
  Sex: Male
  Weight: 82 kg

DRUGS (1)
  1. GENOTROPIN [Suspect]
     Indication: HYPOPITUITARISM
     Dosage: DAILY DOSE:.2MG
     Route: 058

REACTIONS (1)
  - PITUITARY TUMOUR BENIGN [None]
